FAERS Safety Report 9980934 (Version 1)
Quarter: 2014Q1

REPORT INFORMATION
  Report Type: Spontaneous
  Country: US (occurrence: None)
  Receive Date: 20140306
  Receipt Date: 20140306
  Transmission Date: 20141002
  Serious: Yes (Other)
  Sender: FDA-Public Use
  Company Number: None

PATIENT
  Age: 40 Year
  Sex: Female
  Weight: 61.69 kg

DRUGS (1)
  1. ESCITALOPRAM 10 MG [Suspect]
     Indication: DEPRESSION
     Dosage: 1 TABLET ONCE DAILY TAKEN BY MOUTH
     Route: 048
     Dates: start: 20140228, end: 20140303

REACTIONS (7)
  - Product substitution issue [None]
  - Anxiety [None]
  - Paradoxical drug reaction [None]
  - Depressed mood [None]
  - Stress [None]
  - Aggression [None]
  - Drug ineffective [None]
